FAERS Safety Report 8493556 (Version 2)
Quarter: 2013Q2

REPORT INFORMATION
  Report Type: Report from Study
  Country: CA (occurrence: CA)
  Receive Date: 20120404
  Receipt Date: 20130529
  Transmission Date: 20140414
  Serious: Yes (Other)
  Sender: FDA-Public Use
  Company Number: CA-ROCHE-1052545

PATIENT
  Sex: Male
  Weight: 90.8 kg

DRUGS (11)
  1. RITUXIMAB [Suspect]
     Indication: RHEUMATOID ARTHRITIS
     Route: 042
     Dates: start: 20090908
  2. RITUXIMAB [Suspect]
     Route: 065
     Dates: start: 20090922
  3. FUROSEMIDE [Concomitant]
  4. CARVEDILOL [Concomitant]
  5. IMIPRAMINE [Concomitant]
  6. ALLOPURINOL [Concomitant]
  7. LIPITOR [Concomitant]
  8. COZAAR [Concomitant]
  9. METHOTREXATE [Concomitant]
  10. ACETAMINOPHEN [Concomitant]
     Indication: PREMEDICATION
     Route: 048
     Dates: start: 20090922, end: 20090922
  11. METHYLPREDNISOLONE [Concomitant]
     Indication: PREMEDICATION
     Route: 042
     Dates: start: 20090922, end: 20090922

REACTIONS (1)
  - Type 2 diabetes mellitus [Not Recovered/Not Resolved]
